FAERS Safety Report 15832544 (Version 1)
Quarter: 2018Q4

REPORT INFORMATION
  Report Type: Spontaneous
  Country: US (occurrence: US)
  Receive Date: 20181220
  Receipt Date: 20181220
  Transmission Date: 20190205
  Serious: Yes (Other)
  Sender: FDA-Public Use
  Company Number: None

PATIENT
  Age: 35 Year
  Sex: Female

DRUGS (9)
  1. REBIF [Suspect]
     Active Substance: INTERFERON BETA-1A
     Indication: MULTIPLE SCLEROSIS
     Route: 058
     Dates: start: 20180313
  2. VITAMIN D3 [Concomitant]
     Active Substance: CHOLECALCIFEROL
  3. ALEVE [Concomitant]
     Active Substance: NAPROXEN SODIUM
  4. PLACEBO [Concomitant]
     Active Substance: UNSPECIFIED INGREDIENT
  5. TURMERIC [Concomitant]
     Active Substance: HERBALS\TURMERIC
  6. BACLOFEN. [Concomitant]
     Active Substance: BACLOFEN
  7. VITAMIN B COMPLEX [Concomitant]
     Active Substance: CYANOCOBALAMIN\DEXPANTHENOL\NIACINAMIDE\PYRIDOXINE HYDROCHLORIDE\RIBOFLAVIN 5^-PHOSPHATE SODIUM\THIAMINE HYDROCHLORIDE\VITAMIN B COMPLEX
  8. VIGAMOX [Concomitant]
     Active Substance: MOXIFLOXACIN HYDROCHLORIDE
  9. CALCIUM [Concomitant]
     Active Substance: CALCIUM

REACTIONS (1)
  - Injection site irritation [None]

NARRATIVE: CASE EVENT DATE: 20181218
